FAERS Safety Report 8923596 (Version 1)
Quarter: 2012Q4

REPORT INFORMATION
  Report Type: Spontaneous
  Country: ES (occurrence: None)
  Receive Date: 20121114
  Receipt Date: 20121114
  Transmission Date: 20130627
  Serious: Yes (Life-Threatening, Hospitalization)
  Sender: FDA-Public Use
  Company Number: E2B_7171887

PATIENT
  Age: 70 Year
  Sex: Female

DRUGS (6)
  1. EUTIROX (LEVOTHYROXINE SODIUM) [Suspect]
     Route: 048
     Dates: start: 20110929, end: 20120111
  2. SINTROM [Suspect]
     Route: 048
     Dates: start: 20110119, end: 20120111
  3. PANTOPARAZOLE (PANTOPRAZOLE) [Concomitant]
  4. SEGURIL (FUROSEMIDE) [Concomitant]
  5. RENITEC (ENALAPRIL) (ENALAPRIL MALEATE) [Concomitant]
  6. DIGOXIN (DIGOXIN) [Concomitant]

REACTIONS (2)
  - Upper gastrointestinal haemorrhage [None]
  - Apparent life threatening event [None]
